FAERS Safety Report 13648523 (Version 1)
Quarter: 2017Q2

REPORT INFORMATION
  Report Type: Spontaneous
  Country: JP (occurrence: JP)
  Receive Date: 20170613
  Receipt Date: 20170613
  Transmission Date: 20170830
  Serious: Yes (Death)
  Sender: FDA-Public Use
  Company Number: JP-MALLINCKRODT-T201602086

PATIENT
  Age: 44 Year
  Sex: Male
  Weight: 63 kg

DRUGS (7)
  1. OXINORM [Concomitant]
     Active Substance: OXYCODONE HYDROCHLORIDE
     Indication: ANALGESIC THERAPY
     Dosage: 10-20 MG, PRN
     Route: 048
     Dates: start: 20141006
  2. TAKEPRON [Concomitant]
     Active Substance: LANSOPRAZOLE
     Dosage: 30MG
     Route: 048
     Dates: end: 20150422
  3. METHADONE [Suspect]
     Active Substance: METHADONE HYDROCHLORIDE
     Indication: CANCER PAIN
     Dosage: 5MG (15MG TOTAL DAILY DOSE)
     Route: 048
     Dates: start: 20141007, end: 20141013
  4. METHADONE [Suspect]
     Active Substance: METHADONE HYDROCHLORIDE
     Dosage: 10MG (30MG TOTAL DAILY DOSE)
     Route: 048
     Dates: start: 20141014, end: 20141103
  5. CALONAL [Concomitant]
     Active Substance: ACETAMINOPHEN
     Indication: ANALGESIC THERAPY
     Dosage: 3200MG
     Route: 048
     Dates: end: 20150422
  6. METHADONE [Suspect]
     Active Substance: METHADONE HYDROCHLORIDE
     Dosage: 15MG (45MG TOTAL DAILY DOSE)
     Route: 048
     Dates: start: 20141104, end: 20150422
  7. PREDNISOLONE. [Concomitant]
     Active Substance: PREDNISOLONE
     Dosage: 7.5MG
     Route: 048
     Dates: end: 20150408

REACTIONS (3)
  - Somnolence [Recovering/Resolving]
  - Hodgkin^s disease [Fatal]
  - Hypocalcaemia [Recovering/Resolving]

NARRATIVE: CASE EVENT DATE: 20141008
